FAERS Safety Report 5424985-X (Version None)
Quarter: 2007Q3

REPORT INFORMATION
  Report Type: 
  Country: None (occurrence: None)
  Receive Date: 20070824
  Receipt Date: 20070817
  Transmission Date: 20080115
  Serious: Yes (Other)
  Sender: FDA-Public Use
  Company Number: B0484312A

PATIENT
  Age: 47 Year
  Sex: Male

DRUGS (4)
  1. COMBIVIR [Suspect]
     Indication: VIRAL INFECTION
     Route: 048
     Dates: start: 20051001, end: 20070313
  2. KALETRA [Concomitant]
     Indication: VIRAL INFECTION
     Route: 048
     Dates: start: 20051001
  3. HERMOLEPSIN [Concomitant]
     Indication: EPILEPSY
     Dosage: 300MG PER DAY
     Route: 048
     Dates: start: 20051001, end: 20070313
  4. ANTIBIOTICS [Concomitant]
     Indication: STREPTOCOCCAL SEPSIS

REACTIONS (4)
  - FOLATE DEFICIENCY [None]
  - PANCYTOPENIA [None]
  - STREPTOCOCCAL SEPSIS [None]
  - VITAMIN B12 DEFICIENCY [None]
